FAERS Safety Report 18211953 (Version 1)
Quarter: 2020Q3

REPORT INFORMATION
  Report Type: Spontaneous
  Country: IN (occurrence: IN)
  Receive Date: 20200831
  Receipt Date: 20200831
  Transmission Date: 20201103
  Serious: Yes (Death, Other)
  Sender: FDA-Public Use
  Company Number: IN-DRREDDYS-GPV/IND/20/0126362

PATIENT
  Age: 52 Year
  Sex: Female

DRUGS (6)
  1. DOCETAXEL. [Suspect]
     Active Substance: DOCETAXEL
     Indication: BREAST MASS
     Dates: start: 201502
  2. CARBOPLATIN. [Suspect]
     Active Substance: CARBOPLATIN
     Indication: BREAST MASS
     Dates: start: 201509
  3. TAMOXIFEN [Suspect]
     Active Substance: TAMOXIFEN
     Indication: BREAST MASS
  4. CAPECITABINE. [Suspect]
     Active Substance: CAPECITABINE
     Indication: BREAST MASS
     Dates: start: 201502
  5. PACLITAXEL. [Suspect]
     Active Substance: PACLITAXEL
     Indication: BREAST MASS
     Dates: start: 201509
  6. PAMORELIN [Suspect]
     Active Substance: TRIPTORELIN PAMOATE
     Indication: BREAST MASS

REACTIONS (1)
  - Paraneoplastic syndrome [Fatal]
